FAERS Safety Report 8951642 (Version 1)
Quarter: 2012Q4

REPORT INFORMATION
  Report Type: 
  Country: GB (occurrence: GB)
  Receive Date: 20121204
  Receipt Date: 20121204
  Transmission Date: 20130627
  Serious: Yes (Hospitalization, Other)
  Sender: FDA-Public Use
  Company Number: GB-B.I. PHARMACEUTICALS,INC./RIDGEFIELD-2012-UK-01851UK

PATIENT
  Age: 78 Year
  Sex: Male
  Weight: 88 kg

DRUGS (7)
  1. DABIGATRAN [Suspect]
     Indication: ATRIAL FIBRILLATION
     Dosage: 300 mg
     Route: 048
     Dates: start: 20121009, end: 20121018
  2. ASPIRIN [Concomitant]
  3. FELODIPINE [Concomitant]
  4. LANSOPRAZOLE [Concomitant]
  5. LISINOPRIL [Concomitant]
  6. METOPROLOL [Concomitant]
  7. SIMVASTATIN [Concomitant]

REACTIONS (6)
  - Non-cardiac chest pain [Recovered/Resolved]
  - Cold sweat [Unknown]
  - Malaise [Unknown]
  - Hypoaesthesia [Unknown]
  - Hyperhidrosis [Unknown]
  - Nausea [Unknown]
